FAERS Safety Report 16963651 (Version 1)
Quarter: 2019Q4

REPORT INFORMATION
  Report Type: Spontaneous
  Country: US (occurrence: US)
  Receive Date: 20191025
  Receipt Date: 20191025
  Transmission Date: 20200122
  Serious: No
  Sender: FDA-Public Use
  Company Number: US-TEVA-2019-US-1129198

PATIENT
  Age: 68 Year
  Sex: Female

DRUGS (2)
  1. IPRATROPIUM BROMIDE AND ALBUTEROL SULFATE 0.5/3MG PER 3ML INHALATION S [Concomitant]
     Dosage: FORM STRENGTH: 0.5/3 MG/ML.
     Route: 065
  2. PROAIR HFA [Suspect]
     Active Substance: ALBUTEROL SULFATE
     Route: 065

REACTIONS (6)
  - Sleep disorder [Unknown]
  - Dyskinesia [Unknown]
  - Agitation [Unknown]
  - Dyspnoea [Unknown]
  - Feeling hot [Unknown]
  - Quality of life decreased [Unknown]
